FAERS Safety Report 6694036-8 (Version None)
Quarter: 2010Q2

REPORT INFORMATION
  Report Type: 
  Country: None (occurrence: None)
  Receive Date: 20100423
  Receipt Date: 20100323
  Transmission Date: 20101027
  Serious: No
  Sender: FDA-Public Use
  Company Number: US-BAYER-201013527BCC

PATIENT
  Age: 83 Year
  Sex: Male
  Weight: 84 kg

DRUGS (6)
  1. ALEVE [Suspect]
     Indication: MYALGIA
     Dosage: TOTAL DAILY DOSE: 880 MG  UNIT DOSE: 220 MG
     Route: 048
  2. SINEMET [Concomitant]
     Route: 065
  3. TRILEPTAL [Concomitant]
     Route: 065
  4. FLOMAX [Concomitant]
     Route: 065
  5. PROSCAR [Concomitant]
     Route: 065
  6. ASPIRIN [Concomitant]
     Route: 065

REACTIONS (2)
  - DYSPEPSIA [None]
  - FLATULENCE [None]
